FAERS Safety Report 10687484 (Version 3)
Quarter: 2015Q3

REPORT INFORMATION
  Report Type: Spontaneous
  Country: US (occurrence: US)
  Receive Date: 20150102
  Receipt Date: 20150908
  Transmission Date: 20151125
  Serious: Yes (Other)
  Sender: FDA-Public Use
  Company Number: US-BAYER-2014-191275

PATIENT
  Age: 28 Year
  Sex: Female
  Weight: 95 kg

DRUGS (4)
  1. MIRENA [Suspect]
     Active Substance: LEVONORGESTREL
     Indication: CONTRACEPTION
     Dosage: 20 MCG/24HR, CONT
     Route: 015
     Dates: start: 20020703, end: 20080718
  2. OXYCODONE [Concomitant]
     Active Substance: OXYCODONE
     Indication: PAIN MANAGEMENT
     Dosage: UNK
     Dates: start: 2006, end: 2013
  3. FLONASE [Concomitant]
     Active Substance: FLUTICASONE PROPIONATE
     Indication: MULTIPLE ALLERGIES
     Dosage: UNK
     Dates: start: 2005, end: 2012
  4. IMPLANON [Concomitant]
     Active Substance: ETONOGESTREL
     Dosage: UNK
     Dates: start: 200707, end: 200807

REACTIONS (8)
  - Emotional distress [None]
  - Anxiety [None]
  - Device issue [None]
  - Injury [None]
  - Pain [None]
  - Medical device discomfort [None]
  - Device dislocation [None]
  - Device use error [None]

NARRATIVE: CASE EVENT DATE: 200612
